FAERS Safety Report 8798154 (Version 1)
Quarter: 2012Q4

REPORT INFORMATION
  Report Type: Spontaneous
  Country: US (occurrence: None)
  Receive Date: 20120917
  Receipt Date: 20120917
  Transmission Date: 20130627
  Serious: Yes (Hospitalization)
  Sender: FDA-Public Use
  Company Number: None

PATIENT
  Age: 81 Year
  Sex: Male
  Weight: 86.4 kg

DRUGS (2)
  1. DABIGATRAN [Suspect]
     Indication: ATRIAL FIBRILLATION
     Route: 048
     Dates: start: 20120817, end: 20120820
  2. DABIGATRAN [Suspect]
     Indication: ATRIAL FIBRILLATION
     Route: 048
     Dates: start: 20080314, end: 20120820

REACTIONS (7)
  - Gastric haemorrhage [None]
  - Hypotension [None]
  - Diarrhoea [None]
  - Malaise [None]
  - Nausea [None]
  - Anaemia [None]
  - International normalised ratio increased [None]
